FAERS Safety Report 6617371-8 (Version None)
Quarter: 2010Q1

REPORT INFORMATION
  Report Type: 
  Country: None (occurrence: None)
  Receive Date: 20100307
  Receipt Date: 20100202
  Transmission Date: 20100710
  Serious: No
  Sender: FDA-Public Use
  Company Number: US-BAYER-201011638BCC

PATIENT
  Age: 58 Year
  Sex: Female
  Weight: 95 kg

DRUGS (15)
  1. ALEVE (CAPLET) [Suspect]
     Indication: BONE PAIN
     Dosage: TOTAL DAILY DOSE: 440 MG  UNIT DOSE: 220 MG
     Route: 048
     Dates: start: 20100201
  2. PREMPRO [Concomitant]
     Route: 065
  3. ALENDRONATE SODIUM [Concomitant]
     Route: 065
  4. SIMVASTATIN [Concomitant]
     Route: 065
  5. METOPROLOL TARTRATE [Concomitant]
     Route: 065
  6. HYDROCHLOROTHIAZIDE TRIPLEX [Concomitant]
     Route: 065
  7. VITAMIN D [Concomitant]
     Route: 065
  8. PRESERVISION WITH LUTIEN [Concomitant]
     Route: 065
  9. CALCIUM WITH D [Concomitant]
     Route: 065
  10. GLUCOSAMINE SULFATE [Concomitant]
     Route: 065
  11. GINGER ROOT [Concomitant]
     Route: 065
  12. FISH OIL [Concomitant]
     Route: 065
  13. BABY ASPIRIN [Concomitant]
     Route: 065
  14. FOLIC ACID [Concomitant]
     Route: 065
  15. COQTEN [Concomitant]
     Route: 065

REACTIONS (1)
  - HEADACHE [None]
